FAERS Safety Report 5615760-1 (Version None)
Quarter: 2008Q1

REPORT INFORMATION
  Report Type: 
  Country: None (occurrence: None)
  Receive Date: 20080206
  Receipt Date: 20080125
  Transmission Date: 20080703
  Serious: Yes (Other)
  Sender: FDA-Public Use
  Company Number: FR-ROCHE-543988

PATIENT
  Age: 55 Year
  Sex: Female

DRUGS (1)
  1. TAMIFLU [Suspect]
     Indication: INFLUENZA
     Route: 065

REACTIONS (4)
  - CLAVICLE FRACTURE [None]
  - FALL [None]
  - LOSS OF CONSCIOUSNESS [None]
  - VERTIGO [None]
